FAERS Safety Report 20642203 (Version 2)
Quarter: 2022Q2

REPORT INFORMATION
  Report Type: Spontaneous
  Country: DE (occurrence: DE)
  Receive Date: 20220328
  Receipt Date: 20220512
  Transmission Date: 20220720
  Serious: Yes (Hospitalization)
  Sender: FDA-Public Use
  Company Number: DE-NOVARTISPH-NVSC2022DE065119

PATIENT
  Age: 55 Year
  Sex: Female
  Weight: 52 kg

DRUGS (10)
  1. CARBOPLATIN [Suspect]
     Active Substance: CARBOPLATIN
     Indication: Breast cancer
     Dosage: 5 AUC (AREA UNDER THE CURVE), EVERY 3 WEEK, Q3W
     Route: 042
     Dates: start: 20210901, end: 20220101
  2. CARBOPLATIN [Suspect]
     Active Substance: CARBOPLATIN
     Dosage: 5 AUC (AREA UNDER THE CURVE), EVERY 3 WEEK
     Route: 042
     Dates: start: 20210901, end: 20220101
  3. PACLITAXEL [Suspect]
     Active Substance: PACLITAXEL
     Indication: Breast cancer
     Dosage: 80 MG/M2, QW (PER WEEK)
     Route: 042
     Dates: start: 20210901, end: 20220101
  4. PERTUZUMAB [Suspect]
     Active Substance: PERTUZUMAB
     Indication: Breast cancer
     Dosage: EVERY 3 WEEKS
     Route: 042
     Dates: start: 20210901, end: 20220101
  5. METAMIZOLE [Concomitant]
     Active Substance: METAMIZOLE
     Indication: Pain
     Dosage: 500 MG, QD
     Route: 048
     Dates: start: 20220102, end: 20220102
  6. UNACID [Concomitant]
     Indication: Infection
     Dosage: 375 MG, QD
     Route: 048
     Dates: start: 20211229, end: 20220101
  7. MAGNESIUM [Concomitant]
     Active Substance: MAGNESIUM
     Indication: Mineral supplementation
     Dosage: 40 MG, QD
     Route: 048
     Dates: start: 20220107, end: 20220117
  8. LORAZEPAM [Concomitant]
     Active Substance: LORAZEPAM
     Indication: Sedation
     Dosage: 1 MG, QD
     Route: 048
     Dates: start: 20220101, end: 20220116
  9. ENOXAPARIN [Concomitant]
     Active Substance: ENOXAPARIN
     Indication: Anticoagulant therapy
     Dosage: 40 MG, QD
     Route: 065
     Dates: start: 20220101, end: 20220116
  10. PREGABALIN [Concomitant]
     Active Substance: PREGABALIN
     Indication: Polyneuropathy
     Dosage: 50 MG, QD
     Route: 048

REACTIONS (3)
  - Catheter site inflammation [Recovered/Resolved]
  - Catheter site pain [Recovered/Resolved]
  - Staphylococcal infection [Recovered/Resolved]

NARRATIVE: CASE EVENT DATE: 20220101
